FAERS Safety Report 19972529 (Version 1)
Quarter: 2021Q4

REPORT INFORMATION
  Report Type: Report from Study
  Country: PH (occurrence: PH)
  Receive Date: 20211020
  Receipt Date: 20211020
  Transmission Date: 20220303
  Serious: Yes (Other)
  Sender: FDA-Public Use
  Company Number: PH-NOVARTISPH-NVSC2021PH235567

PATIENT
  Age: 72 Year
  Sex: Male

DRUGS (8)
  1. ENTRESTO [Suspect]
     Active Substance: SACUBITRIL\VALSARTAN
     Indication: Product used for unknown indication
     Dosage: 100 MG, BID (8 AM AND 7 PM)
     Route: 048
  2. ENTRESTO [Suspect]
     Active Substance: SACUBITRIL\VALSARTAN
     Dosage: 100 MG, QD (1 TAB DAILY AT MORNING AS MAINTENANCE, DOSE REDUCED)
     Route: 065
     Dates: start: 20210928
  3. BRILINTA [Concomitant]
     Active Substance: TICAGRELOR
     Indication: Product used for unknown indication
     Dosage: UNK,( ONE MORNING AND ONE NIGHT)
     Route: 065
  4. AVAMAX [Concomitant]
     Indication: Product used for unknown indication
     Dosage: UNK UNK, QD (ONE TABLET ONCE DAY, ONE NIGHT 6 PM AS A MAINTENANCE)
     Route: 065
  5. TRIMETAZIDINE [Concomitant]
     Active Substance: TRIMETAZIDINE
     Indication: Product used for unknown indication
     Dosage: UNK (1 MORNING AND 1 NIGHT)
     Route: 065
  6. TRIMETAZIDINE [Concomitant]
     Active Substance: TRIMETAZIDINE
     Dosage: UNK, BID (1 TABLET 2 TIMES A DAY, 7 AM, 6 PM) PECTOVAST
     Route: 065
  7. CLOPIDOGREL [Concomitant]
     Active Substance: CLOPIDOGREL BISULFATE
     Indication: Product used for unknown indication
     Dosage: UNK, QD (1 TABLET, 6PM)
     Route: 065
  8. DUTASTERIDE\TAMSULOSIN [Concomitant]
     Active Substance: DUTASTERIDE\TAMSULOSIN
     Indication: Product used for unknown indication
     Dosage: 1 DF, QD 6PM (STRENGTH: 400MCG/500UG)
     Route: 065

REACTIONS (6)
  - Chronic kidney disease [Unknown]
  - Dyslipidaemia [Unknown]
  - Prostatomegaly [Unknown]
  - Peripheral arterial occlusive disease [Unknown]
  - Coronary artery disease [Unknown]
  - Inappropriate schedule of product administration [Unknown]

NARRATIVE: CASE EVENT DATE: 20210928
